FAERS Safety Report 16976297 (Version 2)
Quarter: 2019Q4

REPORT INFORMATION
  Report Type: Spontaneous
  Country: US (occurrence: US)
  Receive Date: 20191030
  Receipt Date: 20191031
  Transmission Date: 20200122
  Serious: No
  Sender: FDA-Public Use
  Company Number: US-BAYER-2019-189428

PATIENT
  Age: 91 Year
  Sex: Female
  Weight: 64 kg

DRUGS (2)
  1. KELP [IODINE] [Concomitant]
  2. CLARITIN [Suspect]
     Active Substance: LORATADINE
     Indication: INFLUENZA
     Dosage: 2 DF, QD
     Route: 048
     Dates: start: 20191015, end: 20191018

REACTIONS (1)
  - Product use in unapproved indication [Unknown]

NARRATIVE: CASE EVENT DATE: 20191015
